FAERS Safety Report 18964375 (Version 1)
Quarter: 2021Q1

REPORT INFORMATION
  Report Type: Spontaneous
  Country: US (occurrence: US)
  Receive Date: 20210303
  Receipt Date: 20210303
  Transmission Date: 20210420
  Serious: No
  Sender: FDA-Public Use
  Company Number: US-AMNEAL PHARMACEUTICALS-2020-AMRX-02991

PATIENT
  Age: 72 Year
  Sex: Male

DRUGS (3)
  1. RYTARY [Suspect]
     Active Substance: CARBIDOPA\LEVODOPA
     Dosage: 3 CAPSULES, TID
     Route: 048
     Dates: start: 202009, end: 202009
  2. RYTARY [Suspect]
     Active Substance: CARBIDOPA\LEVODOPA
     Dosage: 2 CAPSULES, TID FOR 1 WEEK
     Route: 048
     Dates: start: 202009, end: 202009
  3. RYTARY [Suspect]
     Active Substance: CARBIDOPA\LEVODOPA
     Indication: PARKINSON^S DISEASE
     Dosage: 1 CAPSULES, TID FOR 1 WEEK
     Route: 048
     Dates: start: 20200825, end: 202009

REACTIONS (11)
  - Feeling hot [Unknown]
  - Restless legs syndrome [Unknown]
  - Hypoaesthesia [Unknown]
  - Mobility decreased [Unknown]
  - Paraesthesia [Unknown]
  - Condition aggravated [Unknown]
  - Insomnia [Unknown]
  - Coordination abnormal [Unknown]
  - Thinking abnormal [Unknown]
  - Tremor [Unknown]
  - Hallucination [Unknown]

NARRATIVE: CASE EVENT DATE: 20200828
